FAERS Safety Report 25483618 (Version 1)
Quarter: 2025Q2

REPORT INFORMATION
  Report Type: Spontaneous
  Country: GB (occurrence: GB)
  Receive Date: 20250626
  Receipt Date: 20250626
  Transmission Date: 20250717
  Serious: Yes (Other)
  Sender: GALPHARM INTERNATIONAL
  Company Number: None

PATIENT
  Age: 27 Year
  Sex: Female

DRUGS (1)
  1. ULIPRISTAL ACETATE [Suspect]
     Active Substance: ULIPRISTAL ACETATE
     Indication: Product used for unknown indication
     Route: 065

REACTIONS (1)
  - Amenorrhoea [Not Recovered/Not Resolved]

NARRATIVE: CASE EVENT DATE: 20230912
